FAERS Safety Report 6880208-6 (Version None)
Quarter: 2010Q3

REPORT INFORMATION
  Report Type: 
  Country: None (occurrence: None)
  Receive Date: 20100728
  Receipt Date: 20100525
  Transmission Date: 20110219
  Serious: No
  Sender: FDA-Public Use
  Company Number: US-BRISTOL-MYERS SQUIBB COMPANY-15121692

PATIENT
  Sex: Male

DRUGS (1)
  1. SPRYCEL [Suspect]

REACTIONS (3)
  - ABDOMINAL PAIN UPPER [None]
  - FATIGUE [None]
  - FLUID RETENTION [None]
